FAERS Safety Report 8332534-1 (Version None)
Quarter: 2012Q2

REPORT INFORMATION
  Report Type: 
  Country: None (occurrence: None)
  Receive Date: 20120503
  Receipt Date: 20120426
  Transmission Date: 20120825
  Serious: No
  Sender: FDA-Public Use
  Company Number: US-PFIZER INC-2012103719

PATIENT
  Sex: Female

DRUGS (2)
  1. DETROL LA [Suspect]
     Indication: CYSTITIS INTERSTITIAL
     Dosage: UNK
     Route: 048
  2. OMEPRAZOLE [Concomitant]
     Dosage: 20.6 MG, UNK

REACTIONS (2)
  - DRUG EFFECT DECREASED [None]
  - FREQUENT BOWEL MOVEMENTS [None]
